FAERS Safety Report 7458036-2 (Version None)
Quarter: 2011Q2

REPORT INFORMATION
  Report Type: 
  Country: None (occurrence: None)
  Receive Date: 20110504
  Receipt Date: 20110425
  Transmission Date: 20111010
  Serious: Yes (Hospitalization)
  Sender: FDA-Public Use
  Company Number: US-ASTRAZENECA-2011SE24266

PATIENT
  Age: 77 Year
  Sex: Female

DRUGS (5)
  1. ANTIREJECTION MEDICATION [Concomitant]
     Indication: RENAL TRANSPLANT
  2. MEDICATION FOR DIABETES [Concomitant]
     Indication: DIABETES MELLITUS
  3. CRESTOR [Suspect]
     Route: 048
     Dates: start: 20110311
  4. CRESTOR [Suspect]
     Route: 048
  5. HYPERTENSION MEDICATION [Concomitant]
     Indication: HYPERTENSION

REACTIONS (4)
  - HEPATIC ENZYME INCREASED [None]
  - CARDIAC FAILURE CONGESTIVE [None]
  - DYSPNOEA [None]
  - MYOCARDIAL INFARCTION [None]
